FAERS Safety Report 8460393-5 (Version None)
Quarter: 2012Q2

REPORT INFORMATION
  Report Type: 
  Country: None (occurrence: None)
  Receive Date: 20120323
  Receipt Date: 20111031
  Transmission Date: 20120825
  Serious: Yes (Hospitalization)
  Sender: FDA-Public Use
  Company Number: 163-21880-11110198

PATIENT
  Age: 68 Year
  Sex: Male
  Weight: 111.1313 kg

DRUGS (9)
  1. REVLIMID [Suspect]
     Indication: MULTIPLE MYELOMA
     Dosage: 25 MG, QD X 21 DAYS Q 28 DAYS, PO
     Route: 048
     Dates: start: 20110701
  2. AMLODIPINE BESYLATE [Concomitant]
  3. JANUMET [Concomitant]
  4. ASPIRIN [Concomitant]
  5. LIPITOR [Concomitant]
  6. OXYCODONE HCL [Concomitant]
  7. OMEPRAZOLE [Concomitant]
  8. LISINOPRIL [Concomitant]
  9. DEXAMETHASONE [Concomitant]

REACTIONS (1)
  - INFLUENZA [None]
